FAERS Safety Report 20987465 (Version 3)
Quarter: 2022Q4

REPORT INFORMATION
  Report Type: Report from Study
  Country: US (occurrence: US)
  Receive Date: 20220621
  Receipt Date: 20221010
  Transmission Date: 20230113
  Serious: No
  Sender: FDA-Public Use
  Company Number: US-NOVARTISTESTPH-NVSC2022US140317

PATIENT
  Age: 57 Year
  Sex: Female

DRUGS (2)
  1. KESIMPTA [Suspect]
     Active Substance: OFATUMUMAB
     Indication: Multiple sclerosis
     Dosage: 20 MG, QMO
     Route: 058
     Dates: start: 20220604
  2. KESIMPTA [Suspect]
     Active Substance: OFATUMUMAB
     Dosage: 20 GTT (DROP), QMO
     Route: 058
     Dates: start: 20220604

REACTIONS (3)
  - Influenza like illness [Recovered/Resolved]
  - Muscle tightness [Recovered/Resolved]
  - Irritable bowel syndrome [Recovered/Resolved]

NARRATIVE: CASE EVENT DATE: 20220604
